FAERS Safety Report 16688841 (Version 1)
Quarter: 2019Q4

REPORT INFORMATION
  Report Type: Spontaneous
  Country: US (occurrence: US)
  Receive Date: 20190809
  Receipt Date: 20190809
  Transmission Date: 20200122
  Serious: No
  Sender: FDA-Public Use
  Company Number: None

PATIENT
  Age: 22 Year
  Weight: 83.25 kg

DRUGS (1)
  1. FINASTERIDE. [Suspect]
     Active Substance: FINASTERIDE
     Indication: ALOPECIA
     Dosage: ?          QUANTITY:1 TABLET(S);?
     Route: 048
     Dates: start: 20180920, end: 20190411

REACTIONS (2)
  - Erectile dysfunction [None]
  - Genital hypoaesthesia [None]

NARRATIVE: CASE EVENT DATE: 20190411
